FAERS Safety Report 10994527 (Version 1)
Quarter: 2015Q2

REPORT INFORMATION
  Report Type: Spontaneous
  Country: US (occurrence: None)
  Receive Date: 20150406
  Receipt Date: 20150406
  Transmission Date: 20150821
  Serious: Yes (Disabling)
  Sender: FDA-Public Use
  Company Number: None

PATIENT
  Age: 16 Year
  Sex: Female
  Weight: 92.99 kg

DRUGS (2)
  1. ALLERGY TABLETS [Concomitant]
  2. DEPO-PROVERA [Suspect]
     Active Substance: MEDROXYPROGESTERONE ACETATE
     Indication: CONTRACEPTION
     Dosage: EVERY 3 MONTH  GIVEN INTO/UNDER THE SKIN
     Dates: start: 19980430, end: 20040430

REACTIONS (7)
  - Lactation disorder [None]
  - Hyperhidrosis [None]
  - Weight increased [None]
  - Alopecia [None]
  - Migraine [None]
  - Dyspepsia [None]
  - Hair growth abnormal [None]

NARRATIVE: CASE EVENT DATE: 19980404
